FAERS Safety Report 11882570 (Version 1)
Quarter: 2015Q4

REPORT INFORMATION
  Report Type: Spontaneous
  Country: US (occurrence: None)
  Receive Date: 20151230
  Receipt Date: 20151230
  Transmission Date: 20160305
  Serious: Yes (Disabling, Other)
  Sender: FDA-Public Use
  Company Number: None

PATIENT
  Age: 45 Year
  Sex: Female
  Weight: 86.18 kg

DRUGS (2)
  1. IBUPROFEN. [Concomitant]
     Active Substance: IBUPROFEN
  2. TAMIFLU [Suspect]
     Active Substance: OSELTAMIVIR PHOSPHATE
     Indication: INFLUENZA
     Dosage: 1 PILL TWICE DAILY TAKEN BY MOUTH
     Route: 048
     Dates: start: 20151225, end: 20151228

REACTIONS (9)
  - Palpitations [None]
  - Psychotic disorder [None]
  - Chest pain [None]
  - Dyspnoea [None]
  - Diarrhoea [None]
  - Asthenia [None]
  - Insomnia [None]
  - Abnormal dreams [None]
  - Condition aggravated [None]

NARRATIVE: CASE EVENT DATE: 20151225
